FAERS Safety Report 20348106 (Version 1)
Quarter: 2022Q1

REPORT INFORMATION
  Report Type: Report from Study
  Country: GB (occurrence: GB)
  Receive Date: 20220118
  Receipt Date: 20220118
  Transmission Date: 20220423
  Serious: Yes (Other)
  Sender: FDA-Public Use
  Company Number: GB-CELLTRION INC.-2022GB000327

PATIENT

DRUGS (12)
  1. TRASTUZUMAB [Suspect]
     Active Substance: TRASTUZUMAB
     Indication: Breast cancer
     Dosage: 600 MILLIGRAM, EVERY 3 WEEKS (DOSE FORM: 231)
     Route: 058
     Dates: start: 20180216
  2. DOCETAXEL [Suspect]
     Active Substance: DOCETAXEL
     Indication: Breast cancer
     Dosage: 120 MILLIGRAM, EVERY 3 WEEKS
     Route: 042
     Dates: start: 20180216, end: 20180601
  3. PERTUZUMAB [Suspect]
     Active Substance: PERTUZUMAB
     Indication: Breast cancer
     Dosage: 840 MILLIGRAM/KILOGRAM, EVERY 3 WEEKS (18 CYCLE;DOSE FORM: 230)
     Route: 042
     Dates: start: 20180216
  4. AMOXICILLIN [Concomitant]
     Active Substance: AMOXICILLIN
     Dosage: UNK (DOSE FORM: 245)
     Route: 048
     Dates: start: 20180613, end: 2018
  5. CIPROFLOXACIN [Concomitant]
     Active Substance: CIPROFLOXACIN
     Dosage: UNK (DOSE FORM: 245)
     Route: 048
     Dates: start: 20180613, end: 2018
  6. COCODAMOL [Concomitant]
     Active Substance: ACETAMINOPHEN\CODEINE PHOSPHATE
     Dosage: 30/500 MG (DOSE FORM:245)
     Route: 048
     Dates: start: 20180801, end: 20181003
  7. DEXAMETHASONE [Concomitant]
     Active Substance: DEXAMETHASONE
     Dosage: 8 MILLIGRAM (DOSE FORM:245)
     Route: 048
     Dates: start: 20180218
  8. FILGRASTIM [Concomitant]
     Active Substance: FILGRASTIM
     Dosage: 300 UG
     Route: 058
     Dates: start: 20180219
  9. LOPERAMIDE [Concomitant]
     Active Substance: LOPERAMIDE
     Dosage: 2 MILLIGRAM; AS NECESSARY (DOSE FORM: 245)
     Route: 048
     Dates: start: 20180327, end: 20180328
  10. METRONIDAZOLE [Concomitant]
     Active Substance: METRONIDAZOLE
     Dosage: UNK (DOSE FORM: 245)
     Route: 048
     Dates: start: 20180613, end: 2018
  11. ACETAMINOPHEN [Concomitant]
     Active Substance: ACETAMINOPHEN
     Indication: Pain in extremity
     Dosage: 1000 MILLIGRAM; AS NECESSARY (DOSE FORM: 245)
     Route: 048
     Dates: start: 201811
  12. ZOPICLONE [Concomitant]
     Active Substance: ZOPICLONE
     Dosage: 7.5 MILLIGRAM, QD (DOSE FORM: 245)
     Route: 048
     Dates: start: 20180514

REACTIONS (3)
  - Ejection fraction decreased [Not Recovered/Not Resolved]
  - Bronchitis [Unknown]
  - Off label use [Unknown]

NARRATIVE: CASE EVENT DATE: 20181015
